FAERS Safety Report 24768753 (Version 2)
Quarter: 2025Q1

REPORT INFORMATION
  Report Type: Spontaneous
  Country: US (occurrence: US)
  Receive Date: 20241224
  Receipt Date: 20250107
  Transmission Date: 20250409
  Serious: No
  Sender: ABBVIE
  Company Number: US-ABBVIE-6055950

PATIENT
  Age: 45 Year
  Sex: Female

DRUGS (1)
  1. LATISSE [Suspect]
     Active Substance: BIMATOPROST
     Indication: Growth of eyelashes
     Route: 061

REACTIONS (4)
  - Eye irritation [Unknown]
  - Eye pain [Unknown]
  - Eye irritation [Unknown]
  - Ocular hyperaemia [Unknown]
